FAERS Safety Report 20870925 (Version 1)
Quarter: 2022Q2

REPORT INFORMATION
  Report Type: Spontaneous
  Country: ES (occurrence: ES)
  Receive Date: 20220525
  Receipt Date: 20220525
  Transmission Date: 20220721
  Serious: Yes (Other)
  Sender: FDA-Public Use
  Company Number: ES-PFIZER INC-202200692443

PATIENT
  Sex: Male

DRUGS (2)
  1. CEFTAROLINE FOSAMIL [Suspect]
     Active Substance: CEFTAROLINE FOSAMIL
     Indication: Pneumonia
     Dosage: 600 MG, SINGLE DOSE
     Dates: start: 20220425, end: 20220425
  2. CEFTAROLINE FOSAMIL [Suspect]
     Active Substance: CEFTAROLINE FOSAMIL
     Dosage: 300 MG, 2X/DAY
     Route: 042
     Dates: end: 20220509

REACTIONS (3)
  - Neurotoxicity [Recovered/Resolved]
  - Depressed level of consciousness [Recovered/Resolved]
  - Myoclonus [Unknown]
